FAERS Safety Report 21320787 (Version 1)
Quarter: 2022Q3

REPORT INFORMATION
  Report Type: Spontaneous
  Country: US (occurrence: US)
  Receive Date: 20220912
  Receipt Date: 20220912
  Transmission Date: 20221027
  Serious: No
  Sender: FDA-Public Use
  Company Number: US-NOVARTISTESTPH-NVSC2022US204484

PATIENT

DRUGS (1)
  1. LEQVIO [Suspect]
     Active Substance: INCLISIRAN SODIUM
     Indication: Low density lipoprotein
     Dosage: 284 MG/KG (DAY 1, MONTH 3, THEN EVERY 6 MONTHS)
     Route: 058
     Dates: start: 20220902

REACTIONS (2)
  - Lethargy [Unknown]
  - Pain [Unknown]

NARRATIVE: CASE EVENT DATE: 20220903
